FAERS Safety Report 8826417 (Version 1)
Quarter: 2012Q4

REPORT INFORMATION
  Report Type: 
  Country: US (occurrence: US)
  Receive Date: 20121005
  Receipt Date: 20121005
  Transmission Date: 20130627
  Serious: No
  Sender: FDA-Public Use
  Company Number: US-BAUSCH-2012BL004025

PATIENT
  Age: 90 Year
  Sex: Female

DRUGS (5)
  1. ZIRGAN [Suspect]
     Indication: KERATITIS HERPETIC
     Route: 047
     Dates: start: 20120606, end: 20120612
  2. ZIRGAN [Suspect]
     Route: 047
     Dates: start: 20120613, end: 20120620
  3. CIPROFLOXACIN OPHTHALMIC SOLUTION USP 0.3% [Concomitant]
  4. LATANOPROST OPHTHALMIC SOLUTION 0.005% [Concomitant]
  5. BRIMONIDINE TARTRATE [Concomitant]

REACTIONS (1)
  - Ocular toxicity [Recovering/Resolving]
